FAERS Safety Report 19199313 (Version 1)
Quarter: 2021Q2

REPORT INFORMATION
  Report Type: Spontaneous
  Country: GB (occurrence: GB)
  Receive Date: 20210430
  Receipt Date: 20210430
  Transmission Date: 20210717
  Serious: Yes (Other)
  Sender: FDA-Public Use
  Company Number: GB-TEVA-2021-GB-1905549

PATIENT
  Age: 47 Year
  Sex: Female

DRUGS (1)
  1. BECLOMETHASONE [Suspect]
     Active Substance: BECLOMETHASONE
     Route: 065

REACTIONS (4)
  - Pruritus [Unknown]
  - Urticaria [Unknown]
  - Angioedema [Recovering/Resolving]
  - Dizziness [Unknown]

NARRATIVE: CASE EVENT DATE: 20210417
